FAERS Safety Report 13183764 (Version 2)
Quarter: 2017Q1

REPORT INFORMATION
  Report Type: Spontaneous
  Country: AT (occurrence: AT)
  Receive Date: 20170203
  Receipt Date: 20170208
  Transmission Date: 20170428
  Serious: Yes (Hospitalization, Other)
  Sender: FDA-Public Use
  Company Number: AT-BAYER-2017-018935

PATIENT
  Age: 20 Year
  Sex: Female

DRUGS (1)
  1. MIRENA [Suspect]
     Active Substance: LEVONORGESTREL
     Dosage: 20 MCG/24HR, CONT
     Route: 015
     Dates: start: 20151105, end: 20160108

REACTIONS (10)
  - Peritonitis [Recovered/Resolved]
  - Uterine perforation [Recovered/Resolved]
  - Nausea [Recovered/Resolved]
  - Pelvic abscess [Recovered/Resolved]
  - Abdominal pain lower [Recovered/Resolved]
  - Dysuria [Recovered/Resolved]
  - Hyperhidrosis [Recovered/Resolved]
  - Appendicitis [Recovered/Resolved]
  - Vaginal haemorrhage [Recovered/Resolved]
  - Device defective [None]

NARRATIVE: CASE EVENT DATE: 20151227
